FAERS Safety Report 18998454 (Version 2)
Quarter: 2021Q2

REPORT INFORMATION
  Report Type: Spontaneous
  Country: US (occurrence: US)
  Receive Date: 20210312
  Receipt Date: 20210525
  Transmission Date: 20210717
  Serious: No
  Sender: FDA-Public Use
  Company Number: US-SA-2021SA081252

PATIENT
  Sex: Female

DRUGS (47)
  1. CLONAZEPAM. [Concomitant]
     Active Substance: CLONAZEPAM
  2. OMEPRAZOLE. [Concomitant]
     Active Substance: OMEPRAZOLE
     Dosage: 20 MG
  3. GRALISE [Concomitant]
     Active Substance: GABAPENTIN
  4. ERYTHROMYCIN. [Concomitant]
     Active Substance: ERYTHROMYCIN
     Dosage: 500 MG
  5. MAGNESIUM [Concomitant]
     Active Substance: MAGNESIUM
  6. MEGESTROL ACETATE. [Concomitant]
     Active Substance: MEGESTROL ACETATE
  7. PRILOSEC [Concomitant]
     Active Substance: OMEPRAZOLE MAGNESIUM
  8. METHOCARBAMOL. [Concomitant]
     Active Substance: METHOCARBAMOL
  9. LITHIUM. [Concomitant]
     Active Substance: LITHIUM
  10. OMEPRAZOLE. [Concomitant]
     Active Substance: OMEPRAZOLE
  11. OXYCODONE HYDROCHLORIDE. [Concomitant]
     Active Substance: OXYCODONE HYDROCHLORIDE
     Dosage: 10 MG
  12. OXYCODONE HYDROCHLORIDE. [Concomitant]
     Active Substance: OXYCODONE HYDROCHLORIDE
  13. VITAMINS NOS [Concomitant]
     Active Substance: VITAMINS
     Dosage: UNK UNK, QD
  14. HYDROCODONE [Concomitant]
     Active Substance: HYDROCODONE
  15. LYRICA [Concomitant]
     Active Substance: PREGABALIN
  16. MULTI DAY MULTIVITAMIN PLUS IRON [ASCORBIC ACID;COLECALCIFEROL;CYANOCO [Concomitant]
  17. VALIUM [Concomitant]
     Active Substance: DIAZEPAM
  18. PRILOSEC [Concomitant]
     Active Substance: OMEPRAZOLE MAGNESIUM
  19. TRAZODONE [Concomitant]
     Active Substance: TRAZODONE HYDROCHLORIDE
     Dosage: 100 MG
  20. TRAZODONE [Concomitant]
     Active Substance: TRAZODONE HYDROCHLORIDE
  21. ZINC OXIDE. [Concomitant]
     Active Substance: ZINC OXIDE
  22. ZINC OXIDE. [Concomitant]
     Active Substance: ZINC OXIDE
  23. LYRICA [Concomitant]
     Active Substance: PREGABALIN
  24. GRALISE [Concomitant]
     Active Substance: GABAPENTIN
     Dosage: GRALISE STAR MIS 300/600
  25. AUBAGIO [Suspect]
     Active Substance: TERIFLUNOMIDE
     Indication: MULTIPLE SCLEROSIS
     Dosage: 14 MG, QD
     Route: 048
     Dates: start: 20200226
  26. PROZAC [Concomitant]
     Active Substance: FLUOXETINE HYDROCHLORIDE
  27. MARINOL [ALLOPURINOL] [Concomitant]
     Active Substance: ALLOPURINOL
  28. MAGNESIUM [Concomitant]
     Active Substance: MAGNESIUM
     Dosage: 250 MG
  29. BENTYL [Concomitant]
     Active Substance: DICYCLOMINE HYDROCHLORIDE
  30. CLONAZEPAM. [Concomitant]
     Active Substance: CLONAZEPAM
  31. AMOXICILLIN. [Concomitant]
     Active Substance: AMOXICILLIN
  32. VALIUM [Concomitant]
     Active Substance: DIAZEPAM
  33. HYDROCODONE [Concomitant]
     Active Substance: HYDROCODONE
     Dosage: HYDROCODONE SOL 10?325MG
  34. FOLIC ACID. [Concomitant]
     Active Substance: FOLIC ACID
     Dosage: 1 MG
  35. FOLIC ACID. [Concomitant]
     Active Substance: FOLIC ACID
  36. AMOXICILLIN. [Concomitant]
     Active Substance: AMOXICILLIN
     Dosage: 500 MG
  37. MARINOL [ALLOPURINOL] [Concomitant]
     Active Substance: ALLOPURINOL
  38. FENTANYL. [Concomitant]
     Active Substance: FENTANYL
  39. BENTYL [Concomitant]
     Active Substance: DICYCLOMINE HYDROCHLORIDE
  40. METHOCARBAMOL. [Concomitant]
     Active Substance: METHOCARBAMOL
     Dosage: 500 MG
  41. AMITRIPTYLIN [Concomitant]
     Active Substance: AMITRIPTYLINE
     Dosage: 25 MG
  42. AMPYRA [Concomitant]
     Active Substance: DALFAMPRIDINE
  43. LITHIUM. [Concomitant]
     Active Substance: LITHIUM
  44. PROZAC [Concomitant]
     Active Substance: FLUOXETINE HYDROCHLORIDE
  45. ERYTHROMYCIN. [Concomitant]
     Active Substance: ERYTHROMYCIN
  46. FENTANYL. [Concomitant]
     Active Substance: FENTANYL
     Dosage: DIS12 MCG/HR
  47. MEGESTROL ACETATE. [Concomitant]
     Active Substance: MEGESTROL ACETATE

REACTIONS (2)
  - Product dose omission issue [Unknown]
  - Alopecia [Unknown]
